FAERS Safety Report 16917438 (Version 1)
Quarter: 2019Q4

REPORT INFORMATION
  Report Type: Report from Study
  Country: US (occurrence: US)
  Receive Date: 20191015
  Receipt Date: 20191015
  Transmission Date: 20200122
  Serious: Yes (Hospitalization, Other)
  Sender: FDA-Public Use
  Company Number: US-GLAXOSMITHKLINE-2018-TSO1673-US

PATIENT
  Sex: Female
  Weight: 45 kg

DRUGS (9)
  1. NIRAPARIB [Suspect]
     Active Substance: NIRAPARIB
     Dosage: 200 MG MONDAY, WEDNESDAY, FRIDAY AND 100 MG THE REST OF THE TIME
     Dates: start: 20190617, end: 20190803
  2. CARVEDILOL. [Concomitant]
     Active Substance: CARVEDILOL
     Indication: PRODUCT USED FOR UNKNOWN INDICATION
     Dosage: 6.25 MG, BID
  3. NIRAPARIB [Suspect]
     Active Substance: NIRAPARIB
     Dosage: 100 MG, MONDAY, WEDNESDAY, FRIDAY
     Route: 048
     Dates: start: 20190204
  4. NIRAPARIB [Suspect]
     Active Substance: NIRAPARIB
     Dosage: 100 MG, HS WITHOUT FOOD
     Route: 048
     Dates: start: 20190409, end: 20190604
  5. NIRAPARIB [Suspect]
     Active Substance: NIRAPARIB
     Indication: OVARIAN CANCER
     Dosage: 300 MG, QD
     Route: 048
     Dates: start: 201809, end: 20181101
  6. NIRAPARIB [Suspect]
     Active Substance: NIRAPARIB
     Dosage: 100 MG, MONDAY, WEDNESDAY, FRIDAY, SATURDAY
     Route: 048
  7. NIRAPARIB [Suspect]
     Active Substance: NIRAPARIB
     Dosage: 100 MG, DAILY
     Dates: start: 20190610
  8. NIRAPARIB [Suspect]
     Active Substance: NIRAPARIB
     Dosage: 100 MG, QD
     Route: 048
     Dates: start: 20181112, end: 201812
  9. NIRAPARIB [Suspect]
     Active Substance: NIRAPARIB
     Dosage: 100 MG MONDAY, WEDNESDAY, FRIDAY, SUNDAY
     Route: 048

REACTIONS (18)
  - Haemorrhage [Recovered/Resolved]
  - Rectal haemorrhage [Unknown]
  - Anxiety [Not Recovered/Not Resolved]
  - Product dose omission [Unknown]
  - Fatigue [Not Recovered/Not Resolved]
  - Dehydration [Unknown]
  - Red blood cell count decreased [Not Recovered/Not Resolved]
  - Colonoscopy abnormal [Unknown]
  - Anaemia [Not Recovered/Not Resolved]
  - Gastrointestinal disorder [Unknown]
  - Blood pressure systolic increased [Recovering/Resolving]
  - Platelet count decreased [Unknown]
  - Blood urine present [Unknown]
  - Back pain [Not Recovered/Not Resolved]
  - Arthralgia [Not Recovered/Not Resolved]
  - Inappropriate schedule of product administration [Unknown]
  - Thrombocytopenia [Recovered/Resolved]
  - Dysphagia [Not Recovered/Not Resolved]
